FAERS Safety Report 12467044 (Version 2)
Quarter: 2016Q4

REPORT INFORMATION
  Report Type: Spontaneous
  Country: IT (occurrence: IT)
  Receive Date: 20160615
  Receipt Date: 20161014
  Transmission Date: 20170207
  Serious: Yes (Hospitalization)
  Sender: FDA-Public Use
  Company Number: IT-AUROBINDO-AUR-APL-2016-07750

PATIENT
  Age: 93 Year
  Sex: Female
  Weight: 58 kg

DRUGS (1)
  1. CLOPIDOGREL [Suspect]
     Active Substance: CLOPIDOGREL BISULFATE
     Indication: CORONARY ARTERY DILATATION
     Dosage: 75 MG, DAILY
     Route: 065
     Dates: start: 20160325, end: 20160418

REACTIONS (4)
  - Hemiplegia [Recovering/Resolving]
  - Asthenia [Recovering/Resolving]
  - Aphasia [Recovering/Resolving]
  - Dysarthria [Recovering/Resolving]

NARRATIVE: CASE EVENT DATE: 20160418
